FAERS Safety Report 9307131 (Version 1)
Quarter: 2013Q2

REPORT INFORMATION
  Report Type: Spontaneous
  Country: AT (occurrence: AT)
  Receive Date: 20130524
  Receipt Date: 20130524
  Transmission Date: 20140414
  Serious: Yes (Hospitalization, Other)
  Sender: FDA-Public Use
  Company Number: AT-AMGEN-AUTSP2013036490

PATIENT
  Age: 75 Year
  Sex: Female
  Weight: 50 kg

DRUGS (6)
  1. ENBREL [Suspect]
     Indication: RHEUMATOID ARTHRITIS
     Dosage: 25 MG, WEEKLY
     Route: 058
  2. METHOTREXATE SODIUM [Suspect]
     Dosage: 15 MG, WEEKLY
  3. TRAMAL [Concomitant]
     Dosage: UNK
  4. FOLSAN [Concomitant]
     Dosage: UNK
  5. CAL-D-VITA [Concomitant]
     Dosage: UNK
  6. ALENDRONSTAD [Concomitant]
     Dosage: UNK

REACTIONS (1)
  - Bacteraemia [Recovered/Resolved]
